FAERS Safety Report 23221095 (Version 6)
Quarter: 2024Q1

REPORT INFORMATION
  Report Type: Report from Study
  Country: US (occurrence: US)
  Receive Date: 20231123
  Receipt Date: 20240119
  Transmission Date: 20240409
  Serious: Yes (Hospitalization)
  Sender: FDA-Public Use
  Company Number: US-JNJFOC-20231015761

PATIENT
  Age: 52 Year
  Sex: Female
  Weight: 56.8 kg

DRUGS (4)
  1. EPOPROSTENOL SODIUM [Suspect]
     Active Substance: EPOPROSTENOL SODIUM
     Indication: Pulmonary hypertension
     Dosage: EXPIRY - 31-MAY-2025
     Route: 042
  2. EPOPROSTENOL SODIUM [Suspect]
     Active Substance: EPOPROSTENOL SODIUM
     Dosage: 1.5MG VIAL INTRAVENOUS
     Route: 042
  3. OPSUMIT [Concomitant]
     Active Substance: MACITENTAN
  4. SILDENAFIL CITRATE [Concomitant]
     Active Substance: SILDENAFIL CITRATE

REACTIONS (10)
  - Device occlusion [Unknown]
  - Hospitalisation [Unknown]
  - Fluid retention [Unknown]
  - Dyspnoea [Unknown]
  - Weight increased [Unknown]
  - Swelling [Unknown]
  - Peripheral swelling [Unknown]
  - Nasopharyngitis [Unknown]
  - Cough [Unknown]
  - Underdose [Unknown]

NARRATIVE: CASE EVENT DATE: 20230901
